FAERS Safety Report 8289432-1 (Version None)
Quarter: 2012Q2

REPORT INFORMATION
  Report Type: 
  Country: None (occurrence: None)
  Receive Date: 20120417
  Receipt Date: 20120406
  Transmission Date: 20120825
  Serious: Yes (Hospitalization)
  Sender: FDA-Public Use
  Company Number: FR-CELGENEUS-056-50794-12022361

PATIENT
  Sex: Male

DRUGS (10)
  1. PLAVIX [Suspect]
     Route: 065
  2. PIPERACILLIN AND TAZOBACTAM [Suspect]
     Route: 065
  3. ZOVIRAX [Concomitant]
     Route: 065
  4. VIDAZA [Suspect]
     Route: 041
     Dates: start: 20111201, end: 20120101
  5. LEVOFLOXACIN [Suspect]
     Route: 065
     Dates: start: 20120104
  6. AUGMENTIN '125' [Concomitant]
     Route: 065
     Dates: start: 20120104
  7. VIDAZA [Suspect]
     Dosage: 66.37 MILLIGRAM
     Route: 041
     Dates: start: 20111203, end: 20111209
  8. VFEND [Suspect]
     Route: 065
  9. CEFTRIAXONE [Concomitant]
     Route: 065
     Dates: start: 20120107
  10. BACTRIM [Concomitant]
     Route: 065
     Dates: start: 20120109

REACTIONS (1)
  - PULMONARY FIBROSIS [None]
